FAERS Safety Report 9877282 (Version 2)
Quarter: 2014Q3

REPORT INFORMATION
  Report Type: Report from Study
  Country: BR (occurrence: BR)
  Receive Date: 20140206
  Receipt Date: 20140716
  Transmission Date: 20150326
  Serious: Yes (Other)
  Sender: FDA-Public Use
  Company Number: BR-ELI_LILLY_AND_COMPANY-BR201401009985

PATIENT
  Sex: Female

DRUGS (2)
  1. LISPRO REGLISPRO [Suspect]
     Active Substance: INSULIN LISPRO
     Indication: TYPE 1 DIABETES MELLITUS
     Dosage: 5 IU, OTHER
     Route: 065
     Dates: start: 2006
  2. LANTUS [Concomitant]
     Active Substance: INSULIN GLARGINE
     Indication: PRODUCT USED FOR UNKNOWN INDICATION
     Dosage: UNK, UNKNOWN
     Route: 065

REACTIONS (5)
  - Blindness [Not Recovered/Not Resolved]
  - Neuropathy peripheral [Unknown]
  - Diabetic retinopathy [Unknown]
  - Cardiac disorder [Unknown]
  - Nephropathy [Unknown]

NARRATIVE: CASE EVENT DATE: 2006
